FAERS Safety Report 9503274 (Version 4)
Quarter: 2013Q3

REPORT INFORMATION
  Report Type: Report from Study
  Country: DE (occurrence: DE)
  Receive Date: 20130906
  Receipt Date: 20130923
  Transmission Date: 20140515
  Serious: Yes (Hospitalization, Other)
  Sender: FDA-Public Use
  Company Number: DE-BIOGENIDEC-2013BI066326

PATIENT
  Age: 41 Year
  Sex: Female
  Weight: 76 kg

DRUGS (6)
  1. TYSABRI [Suspect]
     Indication: MULTIPLE SCLEROSIS
     Route: 042
     Dates: start: 20110311, end: 20130531
  2. FAMPYRA [Concomitant]
     Indication: SENSATION OF HEAVINESS
  3. OXYBUTIN [Concomitant]
     Indication: BLADDER DISORDER
     Dates: start: 20101026
  4. RESTEX [Concomitant]
     Indication: RESTLESS LEGS SYNDROME
     Dates: start: 20060316
  5. CITALOPRAM [Concomitant]
     Indication: DEPRESSION
  6. LEVODOPA [Concomitant]
     Indication: RESTLESS LEGS SYNDROME
     Route: 048
     Dates: start: 20050316

REACTIONS (1)
  - Secondary progressive multiple sclerosis [Recovered/Resolved]
